FAERS Safety Report 8274143-9 (Version None)
Quarter: 2012Q2

REPORT INFORMATION
  Report Type: 
  Country: None (occurrence: None)
  Receive Date: 20120411
  Receipt Date: 20120330
  Transmission Date: 20120825
  Serious: No
  Sender: FDA-Public Use
  Company Number: US-PFIZER INC-2012086220

PATIENT
  Sex: Male
  Weight: 99.773 kg

DRUGS (3)
  1. FELODIPINE [Concomitant]
     Indication: BLOOD PRESSURE ABNORMAL
     Dosage: 10 MG/DAY
     Dates: start: 20110101
  2. TIKOSYN [Concomitant]
     Indication: ATRIAL FIBRILLATION
     Dosage: 250 MG, 2X/DAY
     Dates: end: 20120330
  3. CLINDAMYCIN HCL [Suspect]
     Indication: LOCALISED INFECTION
     Dosage: TWO CAPSULES OF 150 MG 4X/DAY
     Dates: start: 20110901, end: 20120101

REACTIONS (1)
  - DRUG INEFFECTIVE [None]
